FAERS Safety Report 14243740 (Version 1)
Quarter: 2017Q4

REPORT INFORMATION
  Report Type: Spontaneous
  Country: US (occurrence: None)
  Receive Date: 20171201
  Receipt Date: 20171201
  Transmission Date: 20180321
  Serious: No
  Sender: FDA-Public Use
  Company Number: None

PATIENT

DRUGS (1)
  1. VALSARTAN, 320 MG [Suspect]
     Active Substance: VALSARTAN

REACTIONS (2)
  - Acute kidney injury [None]
  - Hyperkalaemia [None]
